FAERS Safety Report 6457617-2 (Version None)
Quarter: 2009Q4

REPORT INFORMATION
  Report Type: 
  Country: None (occurrence: None)
  Receive Date: 20091024
  Receipt Date: 20091109
  Transmission Date: 20100525
  Serious: Yes (Hospitalization)
  Sender: FDA-Public Use
  Company Number: 2009AC000258

PATIENT
  Age: 72 Year
  Sex: Male
  Weight: 116 kg

DRUGS (28)
  1. DIGOXIN [Suspect]
     Dosage: .125 MG;QD;PO
     Route: 048
     Dates: start: 20051201, end: 20080101
  2. DIGOXIN [Suspect]
     Dosage: 125 MCG;PO
     Route: 048
     Dates: end: 20090624
  3. METFORMIN HCL [Concomitant]
  4. GLIPIZIDE [Concomitant]
  5. COREG [Concomitant]
  6. LASIX [Concomitant]
  7. METOLAZONE [Concomitant]
  8. BENAZEPRIL HYDROCHLORIDE [Concomitant]
  9. COUMADIN [Concomitant]
  10. LIPITOR [Concomitant]
  11. IMDUR [Concomitant]
  12. ALLOPURINOL [Concomitant]
  13. POTASSIUM CHLORIDE [Concomitant]
  14. ALDACTONE [Concomitant]
  15. CLIPIZIDE [Concomitant]
  16. VIAGRA [Concomitant]
  17. KLOR-CON [Concomitant]
  18. TOLVAPTAN [Concomitant]
  19. METOLAZONE [Concomitant]
  20. NITROGLYCERIN [Concomitant]
  21. FUROSEMIDE [Concomitant]
  22. LIPITOR [Concomitant]
  23. WARFARIN SODIUM [Concomitant]
  24. METOLAZONE [Concomitant]
  25. BENAZEPRIL HYDROCHLORIDE [Concomitant]
  26. ALLOPURINOL [Concomitant]
  27. ISOSORBIDE [Concomitant]
  28. CARVEDILOL [Concomitant]

REACTIONS (9)
  - CARDIAC FAILURE CONGESTIVE [None]
  - ECONOMIC PROBLEM [None]
  - HYPOTENSION [None]
  - MULTIPLE INJURIES [None]
  - ORTHOPNOEA [None]
  - SURGERY [None]
  - TREATMENT NONCOMPLIANCE [None]
  - UNEVALUABLE EVENT [None]
  - WAIST CIRCUMFERENCE INCREASED [None]
